FAERS Safety Report 9624420 (Version 1)
Quarter: 2013Q4

REPORT INFORMATION
  Report Type: Spontaneous
  Country: DE (occurrence: DE)
  Receive Date: 20131015
  Receipt Date: 20131015
  Transmission Date: 20140711
  Serious: Yes (Hospitalization)
  Sender: FDA-Public Use
  Company Number: DE-GLAXOSMITHKLINE-D0081329A

PATIENT
  Age: 31 Year
  Sex: Male
  Weight: 104 kg

DRUGS (1)
  1. ACICLOVIR [Suspect]
     Indication: MENINGITIS VIRAL
     Route: 065
     Dates: start: 2013, end: 2013

REACTIONS (3)
  - Renal failure acute [Recovering/Resolving]
  - Renal impairment [Recovering/Resolving]
  - Blood creatinine increased [Recovering/Resolving]
